FAERS Safety Report 9304799 (Version 1)
Quarter: 2013Q2

REPORT INFORMATION
  Report Type: Spontaneous
  Country: US (occurrence: None)
  Receive Date: 20130521
  Receipt Date: 20130521
  Transmission Date: 20140414
  Serious: Yes (Hospitalization)
  Sender: FDA-Public Use
  Company Number: None

PATIENT
  Age: 72 Year
  Sex: Male
  Weight: 104.3 kg

DRUGS (2)
  1. PREDNISONE [Suspect]
     Route: 048
     Dates: start: 20130131, end: 20130205
  2. METHYLPREDNISONE [Suspect]
     Route: 048
     Dates: start: 20130124, end: 20130130

REACTIONS (1)
  - Adrenal insufficiency [None]
